FAERS Safety Report 7236345-X (Version None)
Quarter: 2011Q1

REPORT INFORMATION
  Report Type: 
  Country: None (occurrence: None)
  Receive Date: 20110120
  Receipt Date: 20110117
  Transmission Date: 20110831
  Serious: Yes (Death, Life-Threatening, Hospitalization)
  Sender: FDA-Public Use
  Company Number: FR-TEVA-250234ISR

PATIENT
  Age: 52 Year
  Sex: Male

DRUGS (5)
  1. AZATHIOPRINE [Suspect]
     Indication: RELAPSING-REMITTING MULTIPLE SCLEROSIS
     Dates: start: 19990301, end: 20071101
  2. AMITRIPTYLINE HYDROCHLORIDE [Concomitant]
  3. GABAPENTIN [Concomitant]
  4. COPAXONE [Suspect]
     Indication: RELAPSING-REMITTING MULTIPLE SCLEROSIS
     Dates: start: 20081020
  5. NATALIZUMAB [Suspect]
     Indication: RELAPSING-REMITTING MULTIPLE SCLEROSIS
     Dates: start: 20071211, end: 20080625

REACTIONS (4)
  - BRONCHIAL CARCINOMA [None]
  - METASTASES TO BONE [None]
  - CHRONIC LYMPHOCYTIC LEUKAEMIA [None]
  - FALL [None]
